FAERS Safety Report 8269041-0 (Version None)
Quarter: 2012Q2

REPORT INFORMATION
  Report Type: 
  Country: None (occurrence: None)
  Receive Date: 20120409
  Receipt Date: 20120327
  Transmission Date: 20120825
  Serious: Yes (Hospitalization)
  Sender: FDA-Public Use
  Company Number: GB-GENZYME-CLOF-1001912

PATIENT
  Sex: Female

DRUGS (11)
  1. TRANEXAMIC ACID [Concomitant]
     Indication: PROCOAGULANT THERAPY
     Dosage: 1 G, TID (PRN)
     Route: 048
  2. MOVIPREP [Concomitant]
     Indication: CONSTIPATION
     Dosage: 1 SACHET, TID
     Route: 048
  3. ACETAMINOPHEN [Concomitant]
     Indication: ANALGESIC THERAPY
     Dosage: 1 G, QID
     Route: 048
  4. LEVEMIR [Concomitant]
     Indication: DIABETES MELLITUS
     Dosage: 10-12 UNITS EVERY MORNING
     Route: 058
  5. FLUCONAZOLE [Concomitant]
     Indication: ANTIFUNGAL PROPHYLAXIS
     Dosage: UNK
     Route: 048
  6. NOVORAPID [Concomitant]
     Indication: DIABETES MELLITUS
     Dosage: 6-10 UNITS, TID
     Route: 058
  7. OCTREOTIDE ACETATE [Concomitant]
     Indication: PRODUCT USED FOR UNKNOWN INDICATION
     Dosage: ONCE PER MONTH
     Route: 065
  8. EVOLTRA [Suspect]
     Indication: ACUTE LEUKAEMIA
     Dosage: UNK
     Route: 065
     Dates: start: 20080207
  9. METOCLOPRAMIDE [Concomitant]
     Indication: ANTIEMETIC SUPPORTIVE CARE
     Dosage: 10 MG, TID (PRN)
     Route: 048
  10. AMITRIPTYLINE HYDROCHLORIDE [Concomitant]
     Indication: PAIN
     Dosage: 20 MG, BID
     Route: 048
  11. LANSOPRAZOLE [Concomitant]
     Indication: ANTACID THERAPY
     Dosage: 15 MG, QD
     Route: 048

REACTIONS (6)
  - TRIFASCICULAR BLOCK [None]
  - HERPES ZOSTER [None]
  - RASH [None]
  - STAPHYLOCOCCAL INFECTION [None]
  - RADICULITIS BRACHIAL [None]
  - HYPOTENSION [None]
